FAERS Safety Report 24900218 (Version 1)
Quarter: 2025Q1

REPORT INFORMATION
  Report Type: Spontaneous
  Country: US (occurrence: US)
  Receive Date: 20250129
  Receipt Date: 20250129
  Transmission Date: 20250409
  Serious: No
  Sender: BAYER HEALTHCARE LLC
  Company Number: US-BAYER-2025A011258

PATIENT
  Sex: Female

DRUGS (3)
  1. LOTRIMIN ULTRA JOCK ITCH [Suspect]
     Active Substance: BUTENAFINE HYDROCHLORIDE
     Indication: Therapeutic skin care topical
     Dosage: 1 DF, QD
     Route: 061
  2. LOTRIMIN ULTRA JOCK ITCH [Suspect]
     Active Substance: BUTENAFINE HYDROCHLORIDE
     Indication: Skin irritation
  3. LOTRIMIN ULTRA JOCK ITCH [Suspect]
     Active Substance: BUTENAFINE HYDROCHLORIDE
     Indication: Skin striae

REACTIONS (2)
  - Drug effective for unapproved indication [Unknown]
  - Product use issue [Unknown]
